FAERS Safety Report 7076704-1 (Version None)
Quarter: 2010Q4

REPORT INFORMATION
  Report Type: 
  Country: None (occurrence: None)
  Receive Date: 20101101
  Receipt Date: 20101020
  Transmission Date: 20110411
  Serious: No
  Sender: FDA-Public Use
  Company Number: US-PFIZER INC-2010134157

PATIENT
  Sex: Female
  Weight: 62.6 kg

DRUGS (8)
  1. LYRICA [Suspect]
     Indication: FIBROMYALGIA
     Dosage: 75 MG, 2X/DAY
     Route: 048
     Dates: start: 20101019, end: 20101019
  2. ZOLPIDEM [Interacting]
     Indication: INSOMNIA
     Dosage: 10 MG, DAILY
  3. LISINOPRIL [Concomitant]
     Dosage: 40 MG, 2X/DAY
  4. NIFEDIPINE [Concomitant]
     Dosage: 30 MG, DAILY
  5. METFORMIN [Concomitant]
     Indication: DIABETES MELLITUS
     Dosage: 500 MG, DAILY
  6. FLUOXETINE [Concomitant]
     Dosage: 20 MG, DAILY
  7. SIMVASTATIN [Concomitant]
     Indication: BLOOD CHOLESTEROL INCREASED
     Dosage: 10 MG, DAILY
  8. MELOXICAM [Concomitant]
     Dosage: 7.5 MG, AS NEEDED

REACTIONS (2)
  - DRUG INTERACTION [None]
  - POOR QUALITY SLEEP [None]
